FAERS Safety Report 16554004 (Version 1)
Quarter: 2019Q3

REPORT INFORMATION
  Report Type: Spontaneous
  Country: ES (occurrence: ES)
  Receive Date: 20190710
  Receipt Date: 20190710
  Transmission Date: 20191004
  Serious: Yes (Hospitalization, Other)
  Sender: FDA-Public Use
  Company Number: ES-SA-2019SA182598

PATIENT
  Age: 83 Year
  Sex: Female

DRUGS (5)
  1. DAONIL [Suspect]
     Active Substance: GLYBURIDE
     Dosage: 5 MG,QD
     Route: 048
     Dates: start: 20180308, end: 20180324
  2. AMILORIDE + HIDROCLOROTIAZIDA [Suspect]
     Active Substance: AMILORIDE HYDROCHLORIDE\HYDROCHLOROTHIAZIDE
     Dosage: 1 DF, QD
     Route: 048
     Dates: start: 20180308, end: 20180324
  3. TRAMADOL HYDROCHLORIDE. [Suspect]
     Active Substance: TRAMADOL HYDROCHLORIDE
     Dosage: 50 MG,QD
     Route: 048
     Dates: start: 20180308, end: 20180324
  4. LORAZEPAM. [Suspect]
     Active Substance: LORAZEPAM
     Dosage: 1 MG, Q12H
     Route: 048
     Dates: start: 20180308, end: 20180324
  5. MORFINA [Suspect]
     Active Substance: MORPHINE HYDROCHLORIDE
     Dosage: 10 MG,QD
     Route: 048
     Dates: start: 20180308, end: 20180324

REACTIONS (2)
  - Inappropriate antidiuretic hormone secretion [Recovered/Resolved]
  - Hyponatraemia [Recovered/Resolved]

NARRATIVE: CASE EVENT DATE: 20180324
